FAERS Safety Report 10163884 (Version 1)
Quarter: 2014Q2

REPORT INFORMATION
  Report Type: Spontaneous
  Country: US (occurrence: US)
  Receive Date: 20140510
  Receipt Date: 20140510
  Transmission Date: 20141212
  Serious: Yes (Other)
  Sender: FDA-Public Use
  Company Number: PHHY2014US054716

PATIENT
  Age: 18 Year
  Sex: Female

DRUGS (4)
  1. MINOCYCLINE HYDROCHLORIDE [Suspect]
     Indication: ACNE
  2. RANITIDINE HYDROCHLORIDE [Concomitant]
  3. CONTRACEPTIVES [Concomitant]
  4. IRON SUPPLEMENTS [Concomitant]

REACTIONS (15)
  - Polyarteritis nodosa [Recovered/Resolved]
  - Skin lesion [Recovered/Resolved]
  - Dermatitis bullous [Recovered/Resolved]
  - Pain [Recovered/Resolved]
  - Myalgia [Recovered/Resolved]
  - Arthralgia [Recovered/Resolved]
  - Joint stiffness [Recovered/Resolved]
  - Paraesthesia [Recovered/Resolved]
  - Joint swelling [Recovered/Resolved]
  - Papule [Recovered/Resolved]
  - Rash erythematous [Recovered/Resolved]
  - Skin ulcer [Recovered/Resolved]
  - C-reactive protein increased [Recovered/Resolved]
  - Panniculitis [Recovered/Resolved]
  - Synovitis [Recovered/Resolved]
